FAERS Safety Report 14026447 (Version 4)
Quarter: 2017Q4

REPORT INFORMATION
  Report Type: Spontaneous
  Country: US (occurrence: US)
  Receive Date: 20170929
  Receipt Date: 20171025
  Transmission Date: 20180321
  Serious: Yes (Other)
  Sender: FDA-Public Use
  Company Number: US-MALLINCKRODT-T201703912

PATIENT
  Sex: Male

DRUGS (1)
  1. INOMAX [Suspect]
     Active Substance: NITRIC OXIDE
     Indication: HYPERTENSION NEONATAL
     Dosage: UNK
     Route: 065
     Dates: start: 20060731

REACTIONS (5)
  - Sepsis [Recovered/Resolved]
  - Respiratory syncytial virus infection [Recovered/Resolved]
  - Pneumonia [Recovered/Resolved]
  - Dyspnoea [Unknown]
  - Eating disorder [Unknown]

NARRATIVE: CASE EVENT DATE: 2007
